FAERS Safety Report 12729292 (Version 3)
Quarter: 2016Q3

REPORT INFORMATION
  Report Type: Spontaneous
  Country: GR (occurrence: GR)
  Receive Date: 20160909
  Receipt Date: 20160922
  Transmission Date: 20161109
  Serious: Yes (Other)
  Sender: FDA-Public Use
  Company Number: GR-SA-2016SA161542

PATIENT
  Age: 75 Year
  Sex: Female

DRUGS (10)
  1. SERETIDE [Concomitant]
     Active Substance: FLUTICASONE PROPIONATE\SALMETEROL XINAFOATE
     Dosage: FREQUENCY: X2/DAY
     Route: 065
     Dates: start: 20160713
  2. LOPRESSOR [Concomitant]
     Active Substance: METOPROLOL TARTRATE
     Dosage: 80MG X? X2 PER DAY
     Route: 065
  3. ELIQUIS [Concomitant]
     Active Substance: APIXABAN
     Route: 065
  4. LASIX [Concomitant]
     Active Substance: FUROSEMIDE
     Dosage: DOSE: 20MG X?/DAY
     Route: 065
  5. GLUCOPHAGE [Concomitant]
     Active Substance: METFORMIN HYDROCHLORIDE
     Route: 065
  6. PREZOLON [Concomitant]
     Active Substance: PREDNISOLONE
     Route: 065
  7. PREZOLON [Concomitant]
     Active Substance: PREDNISOLONE
     Route: 065
  8. NOVORAPID [Concomitant]
     Active Substance: INSULIN ASPART
     Dosage: DOSE: 30-35 UNITS/DAY
     Route: 065
  9. ARAVA [Suspect]
     Active Substance: LEFLUNOMIDE
     Indication: RHEUMATOID ARTHRITIS
     Route: 048
     Dates: start: 20160212, end: 20160913
  10. IRBEPRESS [Concomitant]
     Dosage: DOSE: 300+12,5)MG X1/DAY
     Route: 065

REACTIONS (5)
  - Arrhythmia [Unknown]
  - Hepatic enzyme increased [Unknown]
  - Infection [Recovered/Resolved]
  - Pulmonary fibrosis [Unknown]
  - Haematocrit decreased [Unknown]

NARRATIVE: CASE EVENT DATE: 20160913
